FAERS Safety Report 9732843 (Version 1)
Quarter: 2013Q4

REPORT INFORMATION
  Report Type: Spontaneous
  Country: US (occurrence: US)
  Receive Date: 20131204
  Receipt Date: 20131204
  Transmission Date: 20140711
  Serious: No
  Sender: FDA-Public Use
  Company Number: US-GILEAD-2009-0021286

PATIENT
  Sex: Female
  Weight: 48.53 kg

DRUGS (7)
  1. LETAIRIS [Suspect]
     Indication: PULMONARY ARTERIAL HYPERTENSION
     Route: 048
     Dates: start: 20090218
  2. DIGOXIN [Concomitant]
     Route: 048
  3. ADVAIR [Concomitant]
     Route: 055
  4. PREDNISONE [Concomitant]
     Route: 048
  5. LEVOTHROID [Concomitant]
     Route: 048
  6. FAMOTIDINE [Concomitant]
     Route: 048
  7. NEXIUM [Concomitant]
     Route: 048

REACTIONS (1)
  - Dizziness [Unknown]
